FAERS Safety Report 8612166-8 (Version None)
Quarter: 2012Q3

REPORT INFORMATION
  Report Type: 
  Country: None (occurrence: None)
  Receive Date: 20120822
  Receipt Date: 20120815
  Transmission Date: 20120928
  Serious: Yes (Hospitalization)
  Sender: FDA-Public Use
  Company Number: NL-PFIZER INC-2012201086

PATIENT
  Sex: Male
  Weight: 98 kg

DRUGS (7)
  1. LEVOTHYROXINE [Concomitant]
     Indication: BLOOD THYROID STIMULATING HORMONE DECREASED
     Dosage: UNK
     Dates: start: 19870520
  2. CORTISONE ACETATE [Concomitant]
     Indication: BLOOD CORTICOTROPHIN DECREASED
     Dosage: UNK
     Dates: start: 19870520
  3. ANDRIOL [Concomitant]
     Indication: HYPOGONADISM
     Dosage: UNK
     Dates: start: 19870701
  4. ANDROGEL [Concomitant]
     Indication: HYPOGONADISM MALE
  5. GENOTROPIN [Suspect]
     Dosage: 0.3 MG, 7/WK
     Route: 058
     Dates: start: 20090603
  6. ANDROGEL [Concomitant]
     Indication: BLOOD LUTEINISING HORMONE DECREASED
     Dosage: UNK
     Dates: start: 20081008
  7. ANDROGEL [Concomitant]
     Indication: BLOOD FOLLICLE STIMULATING HORMONE DECREASED

REACTIONS (1)
  - RETINAL INJURY [None]
